FAERS Safety Report 4872376-2 (Version None)
Quarter: 2005Q4

REPORT INFORMATION
  Report Type: 
  Country: None (occurrence: None)
  Receive Date: 20051115
  Receipt Date: 20050810
  Transmission Date: 20060501
  Serious: Yes (Other)
  Sender: FDA-Public Use
  Company Number: 413985

PATIENT
  Age: 59 Year
  Sex: Female
  Weight: 72.6 kg

DRUGS (3)
  1. PEGASYS [Suspect]
     Indication: HEPATITIS C VIRUS
     Dosage: 180 MCG SUBCUTANEOUS
     Route: 058
     Dates: start: 20050627
  2. COPEGUS [Suspect]
     Indication: HEPATITIS C VIRUS
     Dosage: 1200 MG DAILY ORAL
     Route: 048
     Dates: start: 20050627, end: 20050715
  3. PROTONIX (PANTOPAZOLE) [Concomitant]

REACTIONS (4)
  - ALOPECIA [None]
  - ANAEMIA [None]
  - FATIGUE [None]
  - NAUSEA [None]
